FAERS Safety Report 4551475-9 (Version None)
Quarter: 2005Q1

REPORT INFORMATION
  Report Type: 
  Country: None (occurrence: None)
  Receive Date: 20050110
  Receipt Date: 20041229
  Transmission Date: 20050727
  Serious: Yes (Other)
  Sender: FDA-Public Use
  Company Number: 2004121952

PATIENT
  Sex: Male

DRUGS (3)
  1. SUDAFED 12 HOUR [Suspect]
     Dosage: 2 TABLETS PRN, ORAL
     Route: 048
  2. SINEMET [Concomitant]
  3. CLONAZEPAM [Concomitant]

REACTIONS (1)
  - DRUG HYPERSENSITIVITY [None]
